FAERS Safety Report 10834436 (Version 1)
Quarter: 2015Q1

REPORT INFORMATION
  Report Type: Report from Study
  Country: US (occurrence: US)
  Receive Date: 20150219
  Receipt Date: 20150219
  Transmission Date: 20150721
  Serious: No
  Sender: FDA-Public Use
  Company Number: US-ABBVIE-14P-163-1210071-00

PATIENT
  Age: 14 Year
  Sex: Female

DRUGS (3)
  1. MEDROL [Concomitant]
     Active Substance: METHYLPREDNISOLONE
     Indication: JUVENILE IDIOPATHIC ARTHRITIS
     Dosage: DECREASING DOSE
  2. HUMIRA [Suspect]
     Active Substance: ADALIMUMAB
     Indication: JUVENILE IDIOPATHIC ARTHRITIS
     Dosage: ONE PEN
     Route: 065
     Dates: start: 20140201, end: 20140324
  3. EMLA [Suspect]
     Active Substance: LIDOCAINE\PRILOCAINE
     Indication: PROPHYLAXIS

REACTIONS (5)
  - Fear of injection [Not Recovered/Not Resolved]
  - Injection site pain [Unknown]
  - Anxiety [Unknown]
  - Drug ineffective [Unknown]
  - Fear [Not Recovered/Not Resolved]

NARRATIVE: CASE EVENT DATE: 20140301
